FAERS Safety Report 25785641 (Version 1)
Quarter: 2025Q3

REPORT INFORMATION
  Report Type: Spontaneous
  Country: EU (occurrence: EU)
  Receive Date: 20250910
  Receipt Date: 20250910
  Transmission Date: 20251021
  Serious: Yes (Other)
  Sender: TEVA
  Company Number: None

PATIENT
  Age: 59 Year
  Sex: Female

DRUGS (2)
  1. QUETIAPINE [Suspect]
     Active Substance: QUETIAPINE
     Indication: Mental disorder
     Route: 048
     Dates: start: 20250315
  2. PAROXETINE [Suspect]
     Active Substance: PAROXETINE
     Indication: Mental disorder
     Route: 048
     Dates: start: 20250101

REACTIONS (3)
  - Serotonin syndrome [Not Recovered/Not Resolved]
  - Coma [Not Recovered/Not Resolved]
  - Serotonin syndrome [Not Recovered/Not Resolved]

NARRATIVE: CASE EVENT DATE: 20250321
